FAERS Safety Report 24624925 (Version 1)
Quarter: 2024Q4

REPORT INFORMATION
  Report Type: Spontaneous
  Country: JP (occurrence: JP)
  Receive Date: 20241115
  Receipt Date: 20241115
  Transmission Date: 20250115
  Serious: Yes (Other)
  Sender: FERRING
  Company Number: JP-ferring-EVA202401643FERRINGPH

PATIENT

DRUGS (1)
  1. DESMOPRESSIN ACETATE [Suspect]
     Active Substance: DESMOPRESSIN ACETATE
     Indication: Nephrogenic diabetes insipidus
     Dosage: UNK
     Route: 048

REACTIONS (4)
  - Physical deconditioning [Unknown]
  - Inflammatory marker increased [Unknown]
  - Product communication issue [Unknown]
  - Drug ineffective for unapproved indication [Unknown]
